FAERS Safety Report 18757690 (Version 1)
Quarter: 2021Q1

REPORT INFORMATION
  Report Type: Spontaneous
  Country: JP (occurrence: JP)
  Receive Date: 20210119
  Receipt Date: 20210119
  Transmission Date: 20210419
  Serious: Yes (Hospitalization, Other)
  Sender: FDA-Public Use
  Company Number: NVSJ2021JP001005

PATIENT
  Age: 69 Year
  Sex: Male

DRUGS (1)
  1. RIFAMPICIN [Suspect]
     Active Substance: RIFAMPIN
     Indication: TUBERCULOUS PLEURISY
     Dosage: UNK
     Route: 048

REACTIONS (8)
  - Eating disorder [Unknown]
  - Adrenocortical insufficiency acute [Unknown]
  - Adrenal insufficiency [Unknown]
  - Hypotension [Recovering/Resolving]
  - Adrenomegaly [Recovering/Resolving]
  - Hyponatraemia [Recovering/Resolving]
  - Nausea [Recovering/Resolving]
  - Decreased appetite [Recovering/Resolving]
